FAERS Safety Report 6024348-2 (Version None)
Quarter: 2008Q4

REPORT INFORMATION
  Report Type: 
  Country: None (occurrence: None)
  Receive Date: 20081231
  Receipt Date: 20081222
  Transmission Date: 20090506
  Serious: Yes (Disabling, Other)
  Sender: FDA-Public Use
  Company Number: US-JNJFOC-20081206040

PATIENT
  Sex: Female

DRUGS (3)
  1. REMICADE [Suspect]
     Indication: PSORIASIS
     Route: 042
  2. ENBREL [Concomitant]
     Indication: PSORIASIS
     Route: 050
  3. HUMIRA [Concomitant]
     Indication: PSORIASIS

REACTIONS (4)
  - DRUG INEFFECTIVE [None]
  - GAIT DISTURBANCE [None]
  - HYPOKINESIA [None]
  - PSORIASIS [None]
